FAERS Safety Report 26195319 (Version 1)
Quarter: 2025Q4

REPORT INFORMATION
  Report Type: Report from Study
  Country: PH (occurrence: PH)
  Receive Date: 20251224
  Receipt Date: 20251224
  Transmission Date: 20260118
  Serious: Yes (Death)
  Sender: OTSUKA
  Company Number: PH-MMM-Otsuka-HY94IR6G

PATIENT

DRUGS (2)
  1. TOLVAPTAN [Suspect]
     Active Substance: TOLVAPTAN
     Indication: Pulmonary oedema
     Dosage: 0.5 DF, QD (15 MG 1/2 TABLET DAILY IN THE MORNING/AFTER BREAKFAST/ONCE A DAY)
     Route: 061
     Dates: end: 20251002
  2. TOLVAPTAN [Suspect]
     Active Substance: TOLVAPTAN
     Indication: Peripheral swelling

REACTIONS (4)
  - Cardiac failure [Fatal]
  - Wrong technique in product usage process [Unknown]
  - Prescribed underdose [Unknown]
  - Product prescribing issue [Unknown]
